FAERS Safety Report 7163578-3 (Version None)
Quarter: 2010Q4

REPORT INFORMATION
  Report Type: 
  Country: None (occurrence: None)
  Receive Date: 20101210
  Receipt Date: 20101210
  Transmission Date: 20110411
  Serious: Yes (Death)
  Sender: FDA-Public Use
  Company Number: None

PATIENT
  Sex: Male

DRUGS (1)
  1. BETASERON [Suspect]
     Dosage: 0.3 MCG QOD SQ
     Route: 058
     Dates: start: 20070627, end: 20101124

REACTIONS (1)
  - NEUTROPENIA [None]
